FAERS Safety Report 14127170 (Version 2)
Quarter: 2017Q4

REPORT INFORMATION
  Report Type: Spontaneous
  Country: KZ (occurrence: KZ)
  Receive Date: 20171026
  Receipt Date: 20171107
  Transmission Date: 20180321
  Serious: Yes (Life-Threatening, Hospitalization, Other)
  Sender: FDA-Public Use
  Company Number: KZ-ROCHE-2014781

PATIENT
  Age: 8 Year
  Sex: Female

DRUGS (2)
  1. ACTEMRA [Suspect]
     Active Substance: TOCILIZUMAB
     Indication: JUVENILE IDIOPATHIC ARTHRITIS
     Dosage: 2 CYCLES
     Route: 042
     Dates: start: 20170630, end: 20171006
  2. METOJECT [Concomitant]
     Active Substance: METHOTREXATE SODIUM
     Indication: JUVENILE IDIOPATHIC ARTHRITIS
     Route: 065
     Dates: start: 201710

REACTIONS (6)
  - Eye swelling [Recovered/Resolved]
  - Leukocytosis [Recovered/Resolved]
  - Meningitis [Recovered/Resolved]
  - Lymphadenopathy [Recovered/Resolved]
  - Secondary immunodeficiency [Recovered/Resolved]
  - Vomiting [Recovered/Resolved]

NARRATIVE: CASE EVENT DATE: 201710
